FAERS Safety Report 10010314 (Version 1)
Quarter: 2014Q1

REPORT INFORMATION
  Report Type: Spontaneous
  Country: US (occurrence: US)
  Receive Date: 20140314
  Receipt Date: 20140314
  Transmission Date: 20141002
  Serious: Yes (Other)
  Sender: FDA-Public Use
  Company Number: US-JNJCP-30000206521

PATIENT
  Sex: Female

DRUGS (1)
  1. NEUTROGENA DEEP MOISTURE DAY WITH SUNSCREEN BROAD SPECTRUM SPF20 [Suspect]
     Indication: DRY SKIN PROPHYLAXIS
     Dosage: NICKEL SIZE AMOUNT, ONCE IN A DAY
     Route: 061

REACTIONS (3)
  - Loss of consciousness [Recovered/Resolved]
  - Product odour abnormal [Unknown]
  - Application site perspiration [Recovered/Resolved]
